FAERS Safety Report 4910770-1 (Version None)
Quarter: 2006Q1

REPORT INFORMATION
  Report Type: 
  Country: None (occurrence: None)
  Receive Date: 20060209
  Receipt Date: 20060209
  Transmission Date: 20060701
  Serious: Yes (Hospitalization)
  Sender: FDA-Public Use
  Company Number: None

PATIENT
  Sex: Male
  Weight: 97 kg

DRUGS (4)
  1. FLUDARABINE PHOSPHATE [Suspect]
     Indication: MANTLE CELL LYMPHOMA
     Dosage: 270 MG
     Dates: end: 20060127
  2. RITUXIMAB (MOAB C2B8 ANTI CD20, CHIMERIC) [Suspect]
     Dosage: 810 MG
     Dates: end: 20060123
  3. ALLOPURINOL [Concomitant]
  4. BACTRIM [Concomitant]

REACTIONS (13)
  - ARTHRALGIA [None]
  - ARTHRITIS INFECTIVE [None]
  - DIFFICULTY IN WALKING [None]
  - GENERALISED OEDEMA [None]
  - LIMB DISCOMFORT [None]
  - PURPURA [None]
  - PYREXIA [None]
  - RASH ERYTHEMATOUS [None]
  - RASH GENERALISED [None]
  - RASH PRURITIC [None]
  - RHEUMATOID FACTOR INCREASED [None]
  - SERUM SICKNESS [None]
  - STEVENS-JOHNSON SYNDROME [None]
